FAERS Safety Report 9692559 (Version 1)
Quarter: 2013Q4

REPORT INFORMATION
  Report Type: Spontaneous
  Country: US (occurrence: None)
  Receive Date: 20131115
  Receipt Date: 20131115
  Transmission Date: 20140711
  Serious: No
  Sender: FDA-Public Use
  Company Number: None

PATIENT
  Sex: Male

DRUGS (2)
  1. LATUDA [Suspect]
     Indication: PSYCHOTIC DISORDER
     Dosage: LATUDA 40 MG DAILY ORAL
     Route: 048
     Dates: start: 20131107
  2. LITHIUM CARBONATE [Suspect]
     Indication: AFFECTIVE DISORDER
     Dosage: LITHIUM CARBONATE 300 MG BID ORAL
     Route: 048
     Dates: start: 20131107

REACTIONS (1)
  - Swollen tongue [None]
